FAERS Safety Report 8064056-X (Version None)
Quarter: 2012Q1

REPORT INFORMATION
  Report Type: 
  Country: None (occurrence: None)
  Receive Date: 20120123
  Receipt Date: 20120112
  Transmission Date: 20120608
  Serious: Yes (Hospitalization, Other)
  Sender: FDA-Public Use
  Company Number: US-BAYER-2011-040555

PATIENT
  Age: 20 Year
  Sex: Female
  Weight: 75 kg

DRUGS (7)
  1. YAZ [Suspect]
     Dosage: UNK
     Dates: start: 20060101, end: 20080101
  2. DEPAKOTE [Concomitant]
     Indication: CONVULSION
     Dosage: 250 MG, UNK
     Dates: start: 20010801
  3. YASMIN [Suspect]
     Dosage: UNK
     Dates: start: 20060101, end: 20080101
  4. PROTONIX [Concomitant]
     Dosage: 20 MG, UNK
     Dates: start: 20080524
  5. YAZ [Suspect]
     Dosage: UNK
     Dates: start: 20010101
  6. YASMIN [Suspect]
     Dosage: UNK
     Dates: start: 20010101
  7. HYDROCODONE BITARTRATE AND ACETAMINOPHEN [Concomitant]

REACTIONS (13)
  - CEREBROVASCULAR ACCIDENT [None]
  - MENTAL DISORDER [None]
  - DEEP VEIN THROMBOSIS [None]
  - ANHEDONIA [None]
  - PULMONARY EMBOLISM [None]
  - ANXIETY [None]
  - CHOLECYSTITIS CHRONIC [None]
  - GALLBLADDER DISORDER [None]
  - FEAR [None]
  - PAIN [None]
  - INJURY [None]
  - MYOCARDIAL INFARCTION [None]
  - THROMBOSIS [None]
